FAERS Safety Report 6638719-4 (Version None)
Quarter: 2010Q1

REPORT INFORMATION
  Report Type: 
  Country: None (occurrence: None)
  Receive Date: 20100316
  Receipt Date: 20100316
  Transmission Date: 20100710
  Serious: Yes (Other)
  Sender: FDA-Public Use
  Company Number: None

PATIENT
  Age: 56 Year
  Sex: Male
  Weight: 83.4619 kg

DRUGS (1)
  1. VERAPAMIL [Suspect]
     Indication: HYPERTENSION
     Dates: start: 20100301, end: 20100314

REACTIONS (9)
  - ABDOMINAL DISTENSION [None]
  - CHEST DISCOMFORT [None]
  - DEHYDRATION [None]
  - DRUG INEFFECTIVE [None]
  - JOINT SWELLING [None]
  - OROPHARYNGEAL PAIN [None]
  - PRODUCT QUALITY ISSUE [None]
  - PRODUCT SUBSTITUTION ISSUE [None]
  - VISION BLURRED [None]
